FAERS Safety Report 16767082 (Version 1)
Quarter: 2019Q3

REPORT INFORMATION
  Report Type: Spontaneous
  Country: FI (occurrence: FI)
  Receive Date: 20190903
  Receipt Date: 20190903
  Transmission Date: 20191005
  Serious: Yes (Hospitalization)
  Sender: FDA-Public Use
  Company Number: FI-B.I. PHARMACEUTICALS,INC./RIDGEFIELD-2019-12-100048

PATIENT
  Age: 66 Year
  Sex: Male

DRUGS (3)
  1. COPRENESSA [Concomitant]
     Active Substance: INDAPAMIDE\PERINDOPRIL ERBUMINE
     Indication: HYPERTENSION
     Dosage: 1,DF,DAILY
     Route: 048
  2. JARDIANCE [Suspect]
     Active Substance: EMPAGLIFLOZIN
     Indication: DIABETES MELLITUS
     Dosage: 10,MG,DAILY
     Route: 048
     Dates: start: 20190802, end: 20190814
  3. TRAJENTA [Concomitant]
     Active Substance: LINAGLIPTIN
     Indication: DIABETES MELLITUS
     Dosage: 5,MG,DAILY
     Route: 048

REACTIONS (2)
  - Pyelonephritis [Unknown]
  - Pseudomonas test positive [Unknown]

NARRATIVE: CASE EVENT DATE: 20190810
